FAERS Safety Report 19862708 (Version 1)
Quarter: 2021Q3

REPORT INFORMATION
  Report Type: Spontaneous
  Country: DE (occurrence: DE)
  Receive Date: 20210921
  Receipt Date: 20210921
  Transmission Date: 20211014
  Serious: Yes (Other)
  Sender: FDA-Public Use
  Company Number: DE-ORGANON-O2109DEU001587

PATIENT
  Sex: Male

DRUGS (1)
  1. CARBIDOPA (+) LEVODOPA [Suspect]
     Active Substance: CARBIDOPA\LEVODOPA
     Indication: PARKINSON^S DISEASE
     Dosage: 2 DOSAGE FORMS DAILY; ALREADY FOR YEARS, 2 TABLETS IN THE EVENING, 1DF CONTAINS 100 MG LEVODOPA AND,
     Route: 048

REACTIONS (2)
  - Product supply issue [Unknown]
  - Parkinson^s disease [Unknown]
